FAERS Safety Report 18054617 (Version 1)
Quarter: 2020Q3

REPORT INFORMATION
  Report Type: Spontaneous
  Country: US (occurrence: US)
  Receive Date: 20200722
  Receipt Date: 20200722
  Transmission Date: 20201103
  Serious: No
  Sender: FDA-Public Use
  Company Number: US-SA-2020SA186227

PATIENT

DRUGS (1)
  1. NICODERM CQ [Suspect]
     Active Substance: NICOTINE
     Dosage: UNK
     Dates: start: 202011

REACTIONS (4)
  - Skin burning sensation [Unknown]
  - Rash [Unknown]
  - Product adhesion issue [Unknown]
  - Erythema [Unknown]
